FAERS Safety Report 5266490-X (Version None)
Quarter: 2007Q1

REPORT INFORMATION
  Report Type: 
  Country: None (occurrence: None)
  Receive Date: 20070315
  Receipt Date: 20070302
  Transmission Date: 20070707
  Serious: Yes (Hospitalization, Other)
  Sender: FDA-Public Use
  Company Number: US-ELI_LILLY_AND_COMPANY-US200703000505

PATIENT
  Age: 80 Year
  Sex: Female

DRUGS (5)
  1. FORTEO [Suspect]
     Indication: OSTEOPOROSIS
     Dates: start: 20050801
  2. PENTASA [Concomitant]
     Indication: CROHN'S DISEASE
     Dosage: UNK, 3/D
  3. VITAMINS-MINERALS THERAPEUTIC [Concomitant]
  4. PREVALITE [Concomitant]
     Indication: CROHN'S DISEASE
  5. ERGOCALCIFEROL (VITAMIN D) [Concomitant]

REACTIONS (10)
  - ABDOMINAL PAIN UPPER [None]
  - BACK PAIN [None]
  - BLOOD PRESSURE DECREASED [None]
  - CONSCIOUSNESS FLUCTUATING [None]
  - ESCHERICHIA BACTERAEMIA [None]
  - MALAISE [None]
  - NEPHROLITHIASIS [None]
  - PYREXIA [None]
  - RENAL DISORDER [None]
  - VOMITING [None]
